FAERS Safety Report 7659358-2 (Version None)
Quarter: 2011Q3

REPORT INFORMATION
  Report Type: 
  Country: None (occurrence: None)
  Receive Date: 20110805
  Receipt Date: 20110725
  Transmission Date: 20111222
  Serious: Yes (Life-Threatening)
  Sender: FDA-Public Use
  Company Number: DE-ROCHE-794874

PATIENT
  Sex: Male
  Weight: 63.1 kg

DRUGS (6)
  1. CAPECITABINE [Suspect]
     Route: 048
     Dates: start: 20110616, end: 20110620
  2. OXALIPLATIN [Concomitant]
     Route: 042
     Dates: start: 20110616
  3. MAGNESIUM [Concomitant]
     Route: 042
     Dates: start: 20110616
  4. DEXAMETHASONE [Concomitant]
     Indication: ANTIEMETIC SUPPORTIVE CARE
     Route: 042
     Dates: start: 20110616
  5. GRANISETRON [Concomitant]
     Indication: ANTIEMETIC SUPPORTIVE CARE
     Route: 042
     Dates: start: 20110616
  6. CALCIUM NOS [Concomitant]
     Route: 042
     Dates: start: 20110616

REACTIONS (1)
  - ARTERIOSPASM CORONARY [None]
